FAERS Safety Report 25113839 (Version 1)
Quarter: 2025Q1

REPORT INFORMATION
  Report Type: Spontaneous
  Country: FR (occurrence: FR)
  Receive Date: 20250324
  Receipt Date: 20250324
  Transmission Date: 20250408
  Serious: Yes (Death)
  Sender: CHEPLAPHARM
  Company Number: None

PATIENT
  Age: 74 Year
  Sex: Female
  Weight: 45 kg

DRUGS (10)
  1. CAPECITABINE [Suspect]
     Active Substance: CAPECITABINE
     Indication: Breast cancer metastatic
     Route: 048
     Dates: start: 20241111, end: 20250112
  2. CAPECITABINE [Suspect]
     Active Substance: CAPECITABINE
     Indication: Breast cancer metastatic
     Route: 048
     Dates: start: 20250113, end: 20250224
  3. VESICARE [Suspect]
     Active Substance: SOLIFENACIN SUCCINATE
     Indication: Urinary tract disorder
     Dosage: DAILY DOSE: 1 DOSAGE FORM
     Route: 048
     Dates: start: 20250218, end: 20250224
  4. XGEVA [Suspect]
     Active Substance: DENOSUMAB
     Indication: Prophylaxis
     Route: 058
  5. BACTRIM [Concomitant]
     Active Substance: SULFAMETHOXAZOLE\TRIMETHOPRIM
     Dosage: DAILY DOSE: 2 DOSAGE FORM
     Route: 048
     Dates: start: 20250205, end: 20250220
  6. FULVESTRANT [Concomitant]
     Active Substance: FULVESTRANT
     Indication: Breast cancer
     Route: 030
     Dates: start: 20220906, end: 20221010
  7. FULVESTRANT [Concomitant]
     Active Substance: FULVESTRANT
     Indication: Breast cancer
     Route: 030
     Dates: start: 20221020, end: 202411
  8. EVEROLIMUS [Concomitant]
     Active Substance: EVEROLIMUS
     Indication: Breast cancer
     Dosage: DAILY DOSE: 5 MILLIGRAM
     Route: 048
     Dates: start: 20220906, end: 202409
  9. LETROZOLE [Concomitant]
     Active Substance: LETROZOLE
     Indication: Breast cancer
     Dates: start: 201904
  10. ABEMACICLIB [Concomitant]
     Active Substance: ABEMACICLIB
     Indication: Breast cancer
     Dates: start: 201910

REACTIONS (1)
  - Ischaemic stroke [Fatal]

NARRATIVE: CASE EVENT DATE: 20250224
